FAERS Safety Report 6449731-2 (Version None)
Quarter: 2009Q4

REPORT INFORMATION
  Report Type: 
  Country: None (occurrence: None)
  Receive Date: 20091120
  Receipt Date: 20091106
  Transmission Date: 20100525
  Serious: Yes (Hospitalization)
  Sender: FDA-Public Use
  Company Number: HU-GENENTECH-292258

PATIENT
  Sex: Female

DRUGS (5)
  1. BEVACIZUMAB [Suspect]
     Indication: NON-SMALL CELL LUNG CANCER
     Dosage: 307 MG, Q3W
     Route: 042
     Dates: start: 20090715
  2. CARBOPLATIN [Suspect]
     Indication: NON-SMALL CELL LUNG CANCER
     Dosage: 442 MG, Q3W
     Route: 042
     Dates: start: 20090715
  3. GEMCITABINE [Suspect]
     Indication: NON-SMALL CELL LUNG CANCER
     Dosage: 1595 MG, UNK
     Route: 042
     Dates: start: 20090715
  4. GEMCITABINE [Suspect]
     Dosage: 1652 MG, UNK
  5. EPREX [Concomitant]
     Indication: DRUG USE FOR UNKNOWN INDICATION
     Dosage: UNK
     Dates: start: 20090813, end: 20091001

REACTIONS (1)
  - ANAEMIA [None]
